FAERS Safety Report 15318154 (Version 2)
Quarter: 2018Q4

REPORT INFORMATION
  Report Type: Report from Study
  Country: US (occurrence: US)
  Receive Date: 20180825
  Receipt Date: 20181004
  Transmission Date: 20190204
  Serious: Yes (Other)
  Sender: FDA-Public Use
  Company Number: PHEH2018US033886

PATIENT
  Sex: Female

DRUGS (2)
  1. COSENTYX [Suspect]
     Active Substance: SECUKINUMAB
     Indication: PSORIASIS
     Route: 058
  2. COSENTYX [Suspect]
     Active Substance: SECUKINUMAB
     Dosage: 300 MG, QMO
     Route: 058

REACTIONS (7)
  - Pustular psoriasis [Unknown]
  - Skin fissures [Unknown]
  - Drug ineffective [Unknown]
  - Weight decreased [Unknown]
  - Incorrect dose administered [Unknown]
  - Skin haemorrhage [Unknown]
  - Pain of skin [Unknown]
